FAERS Safety Report 8245320-8 (Version None)
Quarter: 2012Q1

REPORT INFORMATION
  Report Type: 
  Country: None (occurrence: None)
  Receive Date: 20120329
  Receipt Date: 20120321
  Transmission Date: 20120608
  Serious: Yes (Hospitalization)
  Sender: FDA-Public Use
  Company Number: US-ELI_LILLY_AND_COMPANY-US201111008958

PATIENT
  Sex: Female
  Weight: 44.998 kg

DRUGS (19)
  1. FORTEO [Suspect]
     Dosage: 20 UG, QD
     Route: 065
  2. LEXAPRO [Concomitant]
     Dosage: 10 MG, QD
  3. VITAMIN D [Concomitant]
  4. FORTEO [Suspect]
     Dosage: 20 UG, QD
     Route: 065
  5. FORTEO [Suspect]
     Dosage: 20 UG, QD
     Route: 065
  6. ATENOLOL [Concomitant]
  7. PREDNISONE [Concomitant]
  8. CYMBALTA [Concomitant]
     Indication: ARTHRITIS
     Dosage: 60 MG, QD
     Dates: start: 20111001
  9. CALCIUM CARBONATE [Concomitant]
  10. FORTEO [Suspect]
     Indication: OSTEOPOROSIS
     Dosage: 20 UG, QD
     Route: 065
     Dates: start: 20110901
  11. THYROID TAB [Concomitant]
  12. DIFLUNISAL [Concomitant]
  13. BRILINTA [Concomitant]
  14. AMITRIPTYLINE HCL [Concomitant]
  15. PRAVASTATIN SODIUM [Concomitant]
     Dosage: 20 MG, UNKNOWN
  16. ANTIHYPERTENSIVES [Concomitant]
  17. FORTEO [Suspect]
     Dosage: 20 UG, QD
     Route: 065
  18. LISINOPRIL [Concomitant]
  19. SPIRIVA [Concomitant]

REACTIONS (9)
  - KIDNEY INFECTION [None]
  - DECREASED ACTIVITY [None]
  - HEADACHE [None]
  - DRUG DOSE OMISSION [None]
  - RESPIRATORY DISORDER [None]
  - MALAISE [None]
  - CYSTITIS [None]
  - STENT PLACEMENT [None]
  - PNEUMONIA [None]
